FAERS Safety Report 8884786 (Version 1)
Quarter: 2012Q4

REPORT INFORMATION
  Report Type: 
  Country: CA (occurrence: CA)
  Receive Date: 20121102
  Receipt Date: 20121102
  Transmission Date: 20130627
  Serious: Yes (Hospitalization, Disabling, Other)
  Sender: FDA-Public Use
  Company Number: CA-PFIZER INC-2012267723

PATIENT
  Age: 44 Year
  Sex: Female

DRUGS (8)
  1. CELEBREX [Suspect]
     Dosage: 100 mg, 2x/day
     Dates: start: 2001
  2. ZYPREXA [Concomitant]
     Dosage: 7.5 mg, UNK
  3. RIVOTRIL [Concomitant]
     Dosage: 2 mg, UNK
  4. PREMARIN [Concomitant]
     Dosage: UNK
  5. SYNTHROID [Concomitant]
     Dosage: UNK
  6. CALCIUM [Concomitant]
     Dosage: UNK
  7. TRAZODONE [Concomitant]
     Dosage: UNK
  8. SEROQUEL [Concomitant]
     Dosage: UNK

REACTIONS (2)
  - Cerebrovascular accident [Recovered/Resolved with Sequelae]
  - Leukocytoclastic vasculitis [Not Recovered/Not Resolved]
